FAERS Safety Report 6724095-5 (Version None)
Quarter: 2010Q2

REPORT INFORMATION
  Report Type: 
  Country: None (occurrence: None)
  Receive Date: 20100513
  Receipt Date: 20100503
  Transmission Date: 20101027
  Serious: Yes (Death)
  Sender: FDA-Public Use
  Company Number: US-ROCHE-693812

PATIENT
  Sex: Male

DRUGS (1)
  1. XELODA [Suspect]
     Indication: NON-SMALL CELL LUNG CANCER
     Route: 065
     Dates: start: 20090201

REACTIONS (1)
  - MALIGNANT NEOPLASM PROGRESSION [None]
